FAERS Safety Report 8493810-5 (Version None)
Quarter: 2012Q3

REPORT INFORMATION
  Report Type: 
  Country: None (occurrence: None)
  Receive Date: 20120706
  Receipt Date: 20120702
  Transmission Date: 20120928
  Serious: Yes (Hospitalization, Other)
  Sender: FDA-Public Use
  Company Number: US-GILEAD-2012-0056661

PATIENT
  Sex: Male

DRUGS (2)
  1. LETAIRIS [Suspect]
     Indication: PULMONARY HYPERTENSION
     Dosage: 10 MG, UNK
     Route: 048
     Dates: start: 20090828
  2. LETAIRIS [Suspect]
     Indication: SCLERODERMA

REACTIONS (3)
  - COUGH [None]
  - LUNG NEOPLASM MALIGNANT [None]
  - DYSPNOEA [None]
